FAERS Safety Report 11427436 (Version 2)
Quarter: 2019Q1

REPORT INFORMATION
  Report Type: Report from Study
  Country: US (occurrence: US)
  Receive Date: 20150827
  Receipt Date: 20190315
  Transmission Date: 20190417
  Serious: Yes (Other)
  Sender: FDA-Public Use
  Company Number: US-SA-2015SA003122

PATIENT
  Age: 47 Year
  Sex: Female

DRUGS (1)
  1. AGALSIDASE BETA [Suspect]
     Active Substance: AGALSIDASE BETA
     Indication: FABRY^S DISEASE
     Dosage: 60 MG,QOW
     Route: 041
     Dates: start: 20051026

REACTIONS (13)
  - Drug hypersensitivity [Not Recovered/Not Resolved]
  - Arrhythmia [Not Recovered/Not Resolved]
  - Dizziness [Not Recovered/Not Resolved]
  - Allergy to metals [Not Recovered/Not Resolved]
  - Influenza [Recovering/Resolving]
  - Ear infection viral [Recovered/Resolved]
  - Abdominal pain [Unknown]
  - Deafness unilateral [Recovered/Resolved]
  - Hepatic steatosis [Unknown]
  - Dizziness [Recovered/Resolved]
  - Pain [Recovering/Resolving]
  - Lipids increased [Unknown]
  - Discomfort [Unknown]

NARRATIVE: CASE EVENT DATE: 201508
